FAERS Safety Report 7380548 (Version 5)
Quarter: 2012Q4

REPORT INFORMATION
  Report Type: 
  Country: US (occurrence: US)
  Receive Date: 20100507
  Receipt Date: 20121221
  Transmission Date: 20130627
  Serious: No
  Sender: FDA-Public Use
  Company Number: US-B.I. PHARMACEUTICALS,INC./RIDGEFIELD-2010-BP-05084BP

PATIENT
  Age: 79 None
  Sex: Female

DRUGS (9)
  1. SPIRIVA HANDIHALER [Suspect]
     Indication: CHRONIC OBSTRUCTIVE PULMONARY DISEASE
     Dosage: 18 mcg
     Route: 055
     Dates: start: 2009
  2. ATENOLOL [Concomitant]
     Indication: HYPERTENSION
     Dosage: 25 mg
     Route: 048
  3. LIPITOR [Concomitant]
     Indication: BLOOD CHOLESTEROL INCREASED
     Dosage: 30 mg
     Route: 048
  4. PAXIL [Concomitant]
     Indication: DEPRESSION
     Dosage: 20 mg
     Route: 048
  5. PAXIL [Concomitant]
     Indication: ANXIETY
  6. ATIVAN [Concomitant]
     Indication: SLEEP DISORDER
  7. DOXAZOSIN [Concomitant]
     Indication: HYPERTENSION
  8. ASPIRIN [Concomitant]
     Indication: ROUTINE HEALTH MAINTENANCE
     Route: 048
  9. TOPAMAX [Concomitant]

REACTIONS (13)
  - Dysphonia [Not Recovered/Not Resolved]
  - Dry mouth [Not Recovered/Not Resolved]
  - Abnormal dreams [Recovered/Resolved]
  - Constipation [Recovered/Resolved]
  - Proctalgia [Not Recovered/Not Resolved]
  - Rectal haemorrhage [Recovered/Resolved]
  - Cataract [Recovered/Resolved]
  - Glaucoma [Recovered/Resolved]
  - Candidiasis [Not Recovered/Not Resolved]
  - Tongue discolouration [Not Recovered/Not Resolved]
  - Eye infection [Unknown]
  - Fatigue [Unknown]
  - Lung disorder [Unknown]
